FAERS Safety Report 6590930-7 (Version None)
Quarter: 2010Q1

REPORT INFORMATION
  Report Type: 
  Country: None (occurrence: None)
  Receive Date: 20100212
  Receipt Date: 20081121
  Transmission Date: 20100710
  Serious: Yes (Other)
  Sender: FDA-Public Use
  Company Number: 08H-163-0315224-00

PATIENT
  Age: 57 Year
  Sex: Male
  Weight: 178 kg

DRUGS (5)
  1. PRECEDEX [Suspect]
     Indication: ANALGESIC THERAPY
     Dosage: 1000MCG/250ML, CONTINUOUS, INTRAVENOUS
     Route: 042
     Dates: start: 20081118, end: 20081118
  2. PRECEDEX [Suspect]
     Indication: SEDATION
     Dosage: 1000MCG/250ML, CONTINUOUS, INTRAVENOUS
     Route: 042
     Dates: start: 20081118, end: 20081118
  3. MORPHINE [Concomitant]
  4. ANTIBIOTIC (ANTIBIOTICS) [Concomitant]
  5. LACTATED RINGERS (FLEBOBAG RING LACT) [Concomitant]

REACTIONS (2)
  - DYSPNOEA [None]
  - HYPERCAPNIA [None]
